FAERS Safety Report 6555193-7 (Version None)
Quarter: 2010Q1

REPORT INFORMATION
  Report Type: 
  Country: None (occurrence: None)
  Receive Date: 20100128
  Receipt Date: 20100120
  Transmission Date: 20100710
  Serious: Yes (Other)
  Sender: FDA-Public Use
  Company Number: CA-AMGEN-KDL383822

PATIENT
  Sex: Female
  Weight: 68.1 kg

DRUGS (8)
  1. ENBREL [Suspect]
     Indication: RHEUMATOID ARTHRITIS
     Route: 058
     Dates: start: 20031118
  2. METHOTREXATE [Suspect]
     Dates: start: 20010201
  3. MOBICOX [Concomitant]
     Dates: start: 20040301
  4. ACTONEL [Concomitant]
     Dates: start: 20040401
  5. ALTACE [Concomitant]
     Dates: start: 20030401
  6. DYAZIDE [Concomitant]
     Dates: start: 20030401
  7. METFORMIN HCL [Concomitant]
     Dates: start: 20031201
  8. LIPITOR [Concomitant]
     Dates: start: 20040101

REACTIONS (3)
  - LOCALISED INFECTION [None]
  - OPEN WOUND [None]
  - TOE OPERATION [None]
